FAERS Safety Report 11147264 (Version 6)
Quarter: 2016Q2

REPORT INFORMATION
  Report Type: Report from Study
  Country: CZ (occurrence: CZ)
  Receive Date: 20150528
  Receipt Date: 20160629
  Transmission Date: 20160815
  Serious: Yes (Death, Life-Threatening, Hospitalization, Other)
  Sender: FDA-Public Use
  Company Number: CZ-GILEAD-2015-0155209

PATIENT
  Age: 81 Year
  Sex: Male
  Weight: 72 kg

DRUGS (27)
  1. BENDAMUSTINE [Suspect]
     Active Substance: BENDAMUSTINE
     Indication: CHRONIC LYMPHOCYTIC LEUKAEMIA
     Dosage: 162 MG, CYCLICAL
     Route: 042
     Dates: start: 20150224, end: 20150224
  2. BENDAMUSTINE [Suspect]
     Active Substance: BENDAMUSTINE
     Dosage: 1 DF, CYCLICAL
     Route: 042
  3. ANOPYRIN [Concomitant]
     Active Substance: ASPIRIN
     Route: 048
     Dates: start: 20150105, end: 20150526
  4. IDELALISIB [Suspect]
     Active Substance: IDELALISIB
     Indication: CHRONIC LYMPHOCYTIC LEUKAEMIA
     Dosage: 150 MG, BID
     Route: 048
     Dates: start: 20150224, end: 20150524
  5. BENDAMUSTINE [Suspect]
     Active Substance: BENDAMUSTINE
     Dosage: 1 DF, CYCLICAL
     Route: 042
  6. DETRALEX [Concomitant]
     Active Substance: DIOSMIN\HESPERIDIN
     Dosage: UNK
     Route: 048
     Dates: start: 20150105, end: 20150527
  7. PARALEN                            /00020001/ [Concomitant]
     Dosage: UNK
     Route: 048
     Dates: start: 20150224, end: 20150427
  8. RITUXIMAB [Suspect]
     Active Substance: RITUXIMAB
     Indication: CHRONIC LYMPHOCYTIC LEUKAEMIA
     Dosage: 175 MG, CYCLICAL
     Route: 042
     Dates: start: 20150224, end: 20150224
  9. RITUXIMAB [Suspect]
     Active Substance: RITUXIMAB
     Dosage: 900 MG, CYCLICAL
     Route: 042
     Dates: start: 20150427, end: 20150427
  10. BENDAMUSTINE [Suspect]
     Active Substance: BENDAMUSTINE
     Dosage: 162 MG, CYCLICAL
     Route: 042
     Dates: start: 20150225, end: 20150225
  11. BENDAMUSTINE [Suspect]
     Active Substance: BENDAMUSTINE
     Dosage: 1 DF, CYCLICAL
     Route: 042
  12. BENDAMUSTINE [Suspect]
     Active Substance: BENDAMUSTINE
     Dosage: 1 DF, CYCLICAL
     Route: 042
  13. RITUXIMAB [Suspect]
     Active Substance: RITUXIMAB
     Dosage: 1 DF, CYCLICAL
     Route: 042
  14. BENDAMUSTINE [Suspect]
     Active Substance: BENDAMUSTINE
     Dosage: 1 DF, CYCLICAL
     Route: 042
  15. BENDAMUSTINE [Suspect]
     Active Substance: BENDAMUSTINE
     Dosage: 162 MG, CYCLICAL
     Route: 042
     Dates: start: 20150330, end: 20150330
  16. DITHIADEN [Concomitant]
     Active Substance: BISULEPIN
     Dosage: UNK
     Route: 042
     Dates: start: 20150224, end: 20150427
  17. RITUXIMAB [Suspect]
     Active Substance: RITUXIMAB
     Dosage: 1 DF, CYCLICAL
     Route: 042
  18. ZOFRAN [Concomitant]
     Active Substance: ONDANSETRON HYDROCHLORIDE
     Dosage: UNK
     Route: 048
     Dates: start: 20150224, end: 20150524
  19. BENDAMUSTINE [Suspect]
     Active Substance: BENDAMUSTINE
     Dosage: 162 MG, CYCLICAL
     Route: 042
     Dates: start: 20150427, end: 20150427
  20. LUSOPRESS [Concomitant]
     Active Substance: NITRENDIPINE
     Indication: HYPERTENSION
     Dosage: UNK
     Route: 048
     Dates: start: 2009, end: 20150527
  21. RITUXIMAB [Suspect]
     Active Substance: RITUXIMAB
     Dosage: 900 MG, CYCLICAL
     Route: 042
     Dates: start: 20150330, end: 20150330
  22. BENDAMUSTINE [Suspect]
     Active Substance: BENDAMUSTINE
     Dosage: 162 MG, CYCLICAL
     Route: 042
     Dates: start: 20150331, end: 20150331
  23. HYDROCORTISON                      /00028601/ [Concomitant]
     Active Substance: HYDROCORTISONE
     Dosage: UNK
     Route: 042
     Dates: start: 20150224, end: 20150427
  24. KYTRIL [Concomitant]
     Active Substance: GRANISETRON HYDROCHLORIDE
     Route: 042
     Dates: start: 20150427, end: 20150427
  25. PERFALGAN [Concomitant]
     Active Substance: ACETAMINOPHEN
     Indication: INFUSION RELATED REACTION
     Route: 042
     Dates: start: 20150428, end: 20150428
  26. BELOGENT [Concomitant]
     Indication: RASH
     Dosage: UNK
     Route: 061
     Dates: start: 20150504, end: 20150511
  27. TAZOCIN [Concomitant]
     Active Substance: PIPERACILLIN SODIUM\TAZOBACTAM SODIUM
     Indication: INFUSION RELATED REACTION
     Route: 042
     Dates: start: 20150428, end: 20150429

REACTIONS (2)
  - Pneumocystis jirovecii pneumonia [Recovered/Resolved with Sequelae]
  - Cardiopulmonary failure [Fatal]

NARRATIVE: CASE EVENT DATE: 20150525
